FAERS Safety Report 4356089-1 (Version None)
Quarter: 2004Q2

REPORT INFORMATION
  Report Type: 
  Country: None (occurrence: None)
  Receive Date: 20040510
  Receipt Date: 20040510
  Transmission Date: 20050107
  Serious: Yes (Other)
  Sender: FDA-Public Use
  Company Number: None

PATIENT
  Sex: Male

DRUGS (2)
  1. CELEBREX [Suspect]
  2. CELEXA [Suspect]

REACTIONS (7)
  - DISTURBANCE IN ATTENTION [None]
  - IMPAIRED WORK ABILITY [None]
  - INSOMNIA [None]
  - LIBIDO DECREASED [None]
  - MEDICATION ERROR [None]
  - SUICIDAL IDEATION [None]
  - TREMOR [None]
